FAERS Safety Report 10638223 (Version 1)
Quarter: 2014Q4

REPORT INFORMATION
  Report Type: Spontaneous
  Country: IT (occurrence: IT)
  Receive Date: 20141208
  Receipt Date: 20141208
  Transmission Date: 20150529
  Serious: Yes (Life-Threatening)
  Sender: FDA-Public Use
  Company Number: IT-TEVA-525732ISR

PATIENT
  Age: 46 Year
  Sex: Female

DRUGS (1)
  1. EPIRUBICINA TEVA [Suspect]
     Active Substance: EPIRUBICIN
     Indication: BLADDER NEOPLASM
     Route: 043
     Dates: start: 20141106, end: 20141120

REACTIONS (3)
  - Dermatitis allergic [Recovered/Resolved]
  - Presyncope [Recovered/Resolved]
  - Hypotension [Recovered/Resolved]

NARRATIVE: CASE EVENT DATE: 20141120
